FAERS Safety Report 7183197-2 (Version None)
Quarter: 2010Q4

REPORT INFORMATION
  Report Type: 
  Country: None (occurrence: None)
  Receive Date: 20101222
  Receipt Date: 20100115
  Transmission Date: 20110411
  Serious: No
  Sender: FDA-Public Use
  Company Number: A0796654A

PATIENT
  Age: 53 Year
  Sex: Female

DRUGS (7)
  1. FLONASE [Suspect]
     Route: 065
  2. ADVAIR [Suspect]
     Indication: CHRONIC OBSTRUCTIVE PULMONARY DISEASE
     Route: 055
     Dates: start: 20081010
  3. SPIRIVA [Concomitant]
  4. SINGULAIR [Concomitant]
  5. CALCIUM [Concomitant]
  6. VITAMINS [Concomitant]
  7. PREDNISONE [Concomitant]

REACTIONS (3)
  - ILL-DEFINED DISORDER [None]
  - INFLUENZA LIKE ILLNESS [None]
  - PYREXIA [None]
